FAERS Safety Report 9815686 (Version 1)
Quarter: 2014Q1

REPORT INFORMATION
  Report Type: Spontaneous
  Country: DK (occurrence: FR)
  Receive Date: 20140114
  Receipt Date: 20140114
  Transmission Date: 20141002
  Serious: Yes (Hospitalization)
  Sender: FDA-Public Use
  Company Number: FR-FRI-1000052812

PATIENT
  Age: 91 Year
  Sex: Female

DRUGS (15)
  1. ESCITALOPRAM [Suspect]
     Indication: MENTAL DISORDER
     Dosage: 10 MG
     Route: 048
  2. PLAVIX [Interacting]
     Indication: THROMBOSIS PROPHYLAXIS
     Dosage: 75 MG
     Route: 048
     Dates: end: 20131212
  3. ARIXTRA [Interacting]
     Indication: THROMBOSIS PROPHYLAXIS
     Dosage: 5 MG
     Route: 058
     Dates: start: 20131119, end: 20131212
  4. CELLUVISC [Concomitant]
     Dosage: 4 MG/0.4 ML
     Route: 047
  5. CORDARONE [Concomitant]
     Route: 048
  6. TARDYFERON [Concomitant]
  7. ALPRAZOLAM [Concomitant]
  8. AMLOR [Concomitant]
  9. DICHLORHYDRATE DE CETIRIZINE [Concomitant]
  10. MESTINON [Concomitant]
  11. EBIXA [Concomitant]
  12. FURADANTINE [Concomitant]
  13. DAFALGAN [Concomitant]
  14. TRANSIPEG [Concomitant]
  15. INEXIUM [Concomitant]

REACTIONS (4)
  - Haematoma [Recovering/Resolving]
  - Ecchymosis [Recovering/Resolving]
  - Anaemia [Recovered/Resolved]
  - Drug interaction [Unknown]
